FAERS Safety Report 8525631-9 (Version None)
Quarter: 2012Q3

REPORT INFORMATION
  Report Type: 
  Country: None (occurrence: None)
  Receive Date: 20120720
  Receipt Date: 20120713
  Transmission Date: 20120928
  Serious: Yes (Life-Threatening, Hospitalization)
  Sender: FDA-Public Use
  Company Number: JP-PFIZER INC-2012163756

PATIENT
  Age: 74 Year
  Sex: Male

DRUGS (8)
  1. MIGLITOL [Suspect]
     Indication: DIABETES MELLITUS
     Dosage: 50 MG, 3X/DAY
     Route: 048
     Dates: start: 20080101
  2. ONON [Concomitant]
  3. GLYBURIDE [Suspect]
     Dosage: 2.5 MG, 1/XDAY (BEFORE BREAKFAST)
     Route: 048
     Dates: start: 20100227, end: 20100302
  4. BISOPROLOL FUMARATE [Concomitant]
  5. ASPIRIN [Concomitant]
  6. GLYBURIDE [Suspect]
     Indication: DIABETES MELLITUS
     Dosage: 2.5 MG, 2X/DAY (BEFORE BREAKFAST AND LUNCH)
     Route: 048
     Dates: start: 20080412, end: 20100201
  7. PLAVIX [Concomitant]
  8. PRAVASTATIN [Concomitant]

REACTIONS (1)
  - HYPOGLYCAEMIA [None]
